FAERS Safety Report 9378521 (Version 3)
Quarter: 2013Q4

REPORT INFORMATION
  Report Type: Report from Study
  Country: AR (occurrence: AR)
  Receive Date: 20130702
  Receipt Date: 20131115
  Transmission Date: 20140711
  Serious: Yes (Other)
  Sender: FDA-Public Use
  Company Number: AR-ROCHE-1243236

PATIENT
  Sex: Female

DRUGS (4)
  1. RANIBIZUMAB [Suspect]
     Indication: MACULOPATHY
     Dosage: ONE AMPULE EVEY ONE AND HALF MONTH
     Route: 050
     Dates: start: 2012
  2. RANIBIZUMAB [Suspect]
     Route: 050
     Dates: start: 201308
  3. RANIBIZUMAB [Suspect]
     Route: 050
     Dates: start: 201309
  4. RANIBIZUMAB [Suspect]
     Route: 050
     Dates: start: 201310

REACTIONS (8)
  - Infection [Recovering/Resolving]
  - Hypermetropia [Recovering/Resolving]
  - Visual impairment [Recovering/Resolving]
  - Vision blurred [Recovering/Resolving]
  - Depressed mood [Recovering/Resolving]
  - General physical health deterioration [Recovering/Resolving]
  - Visual acuity reduced [Recovering/Resolving]
  - Drug ineffective [Unknown]
